FAERS Safety Report 14453207 (Version 1)
Quarter: 2018Q1

REPORT INFORMATION
  Report Type: Spontaneous
  Country: DE (occurrence: DE)
  Receive Date: 20180129
  Receipt Date: 20180129
  Transmission Date: 20180509
  Serious: Yes (Other)
  Sender: FDA-Public Use
  Company Number: DE-PFIZER INC-2018036113

PATIENT
  Age: 67 Year
  Sex: Female

DRUGS (12)
  1. LITHIUM. [Suspect]
     Active Substance: LITHIUM
     Dosage: 225 MG, 1X/DAY
     Route: 048
     Dates: start: 2015
  2. BISOPROLOL [Concomitant]
     Active Substance: BISOPROLOL
     Dosage: 5 MG, 1X/DAY, FOR SEVERAL YEARS
     Route: 048
  3. EMSELEX /01760402/ [Concomitant]
     Dosage: 7.5 MG, 1X/DAY
     Route: 048
  4. MIRTAZAPIN [Suspect]
     Active Substance: MIRTAZAPINE
     Indication: SLEEP DISORDER
     Dosage: 15 MG, 1X/DAY
     Route: 048
     Dates: start: 20170510, end: 20170727
  5. INSULIN [Concomitant]
     Active Substance: INSULIN NOS
     Dosage: 8 IU, 1X/DAY
     Route: 058
     Dates: start: 2016
  6. METFORMIN [Concomitant]
     Active Substance: METFORMIN HYDROCHLORIDE
     Dosage: FOR SEVERAL YEARS
     Route: 048
  7. BYETTA [Concomitant]
     Active Substance: EXENATIDE
     Dosage: 20 IU, 1X/DAY
     Route: 058
     Dates: start: 2016
  8. INEGY [Concomitant]
     Active Substance: EZETIMIBE\SIMVASTATIN
     Indication: LIPIDS INCREASED
     Dosage: 20/10 MG,  DAILY
     Dates: start: 2012
  9. TOREM /01036501/ [Concomitant]
     Active Substance: TORSEMIDE
     Dosage: 10 MG, 1X/DAY, FOR SEVERAL YEARS
     Route: 048
  10. ELIQUIS [Concomitant]
     Active Substance: APIXABAN
     Dosage: 10 MG, 1X/DAY
     Route: 048
     Dates: start: 2015
  11. VENLAFAXINE HCL [Suspect]
     Active Substance: VENLAFAXINE HYDROCHLORIDE
     Dosage: 150 MG, 1X/DAY
     Route: 048
     Dates: start: 2015
  12. RAMIPRIL. [Concomitant]
     Active Substance: RAMIPRIL
     Dosage: 2.5 MG, 1X/DAY, FOR SEVERAL YEARS
     Route: 048

REACTIONS (3)
  - Appetite disorder [Recovered/Resolved]
  - Increased appetite [Recovered/Resolved]
  - Weight increased [Not Recovered/Not Resolved]

NARRATIVE: CASE EVENT DATE: 20170726
